FAERS Safety Report 4427637-8 (Version None)
Quarter: 2004Q3

REPORT INFORMATION
  Report Type: 
  Country: None (occurrence: None)
  Receive Date: 20040812
  Receipt Date: 20040810
  Transmission Date: 20050211
  Serious: Yes (Hospitalization, Disabling)
  Sender: FDA-Public Use
  Company Number: FRWYE731529APR04

PATIENT
  Age: 68 Year
  Sex: Female

DRUGS (10)
  1. EFFEXOR [Suspect]
     Indication: MAJOR DEPRESSION
     Dosage: FROM 150 MG TO 200 MG DAILY, ORAL
     Route: 048
     Dates: start: 20020101, end: 20040323
  2. EFFEXOR [Suspect]
     Dosage: 300 MG 1X PER 1 DAY, ORAL
     Route: 048
     Dates: start: 20040324, end: 20040427
  3. EFFEXOR [Suspect]
     Dosage: 150 MG 1X PER 1 DAY, ORAL
     Route: 048
     Dates: start: 20040428, end: 20040513
  4. HALDOL [Suspect]
     Indication: DELIRIUM
     Dosage: 6 MG 1X PER 1 DAY, ORAL
     Route: 048
     Dates: start: 20040225, end: 20040402
  5. DITROPAN [Concomitant]
  6. ACTONEL [Concomitant]
  7. CALCIUM WITH VITAMIN D (CALCIUM PHOSPHATE/CALCIUM SODIUM LACTATE/ERGOC [Concomitant]
  8. LYSANXIA (PRAZEPAM) [Concomitant]
  9. IMOVANE (ZOPICLONE) [Concomitant]
  10. DI-ANTALVIC (DEXTROPROPOXYPHENE HYDROCHLORIDE/PARACETAMOL) [Concomitant]

REACTIONS (3)
  - DISEASE PROGRESSION [None]
  - EXTRAPYRAMIDAL DISORDER [None]
  - MAJOR DEPRESSION [None]
